FAERS Safety Report 13238741 (Version 1)
Quarter: 2017Q1

REPORT INFORMATION
  Report Type: Spontaneous
  Country: US (occurrence: US)
  Receive Date: 20170216
  Receipt Date: 20170216
  Transmission Date: 20170428
  Serious: Yes (Other)
  Sender: FDA-Public Use
  Company Number: US-CLINIGEN GROUP PLC/ CLINIGEN HEALTHCARE LTD-E2B_00002316

PATIENT
  Sex: Female
  Weight: 82 kg

DRUGS (3)
  1. ETHYOL [Suspect]
     Active Substance: AMIFOSTINE
     Indication: ADVERSE DRUG REACTION
     Dosage: 500MG 5XWK  UNKNOWN
     Route: 058
  2. REGLAN [Concomitant]
     Active Substance: METOCLOPRAMIDE HYDROCHLORIDE
     Indication: VOMITING
     Route: 065
  3. COMPAZINE [Concomitant]
     Active Substance: PROCHLORPERAZINE MALEATE
     Indication: VOMITING
     Route: 065

REACTIONS (3)
  - Rash generalised [Unknown]
  - Face oedema [Unknown]
  - Anaphylactoid reaction [Recovered/Resolved]
